FAERS Safety Report 7484763-7 (Version None)
Quarter: 2011Q2

REPORT INFORMATION
  Report Type: 
  Country: None (occurrence: None)
  Receive Date: 20110517
  Receipt Date: 20110509
  Transmission Date: 20111010
  Serious: Yes (Hospitalization)
  Sender: FDA-Public Use
  Company Number: DE-ROCHE-748139

PATIENT
  Sex: Male

DRUGS (5)
  1. AMLODIPINE BESYLATE [Concomitant]
  2. MYCOPHENOLATE MOFETIL [Suspect]
     Route: 048
     Dates: start: 20090426
  3. BISOPROLOL FUMARATE [Concomitant]
     Dates: start: 20090427
  4. PANTOPRAZOLE [Concomitant]
  5. TACROLIMUS [Suspect]
     Route: 048
     Dates: start: 20090426

REACTIONS (5)
  - PLEURAL EFFUSION [None]
  - MALIGNANT PLEURAL EFFUSION [None]
  - HEPATIC NEOPLASM MALIGNANT RECURRENT [None]
  - STATUS EPILEPTICUS [None]
  - CONVULSION [None]
